FAERS Safety Report 6674910-9 (Version None)
Quarter: 2010Q2

REPORT INFORMATION
  Report Type: 
  Country: None (occurrence: None)
  Receive Date: 20100409
  Receipt Date: 20100331
  Transmission Date: 20101027
  Serious: Yes (Other)
  Sender: FDA-Public Use
  Company Number: US-JNJFOC-20100401029

PATIENT
  Sex: Male
  Weight: 80.74 kg

DRUGS (7)
  1. DURAGESIC-100 [Suspect]
     Indication: SPINAL CORD INJURY
     Route: 062
  2. DURAGESIC-100 [Suspect]
     Route: 062
  3. DURAGESIC-100 [Suspect]
     Route: 062
  4. DURAGESIC-100 [Suspect]
     Route: 062
  5. FENTANYL-100 [Suspect]
     Indication: SPINAL CORD INJURY
     Route: 062
  6. NICODERM [Suspect]
     Indication: SMOKING CESSATION THERAPY
     Route: 062
  7. MORPHINE [Concomitant]
     Indication: BREAKTHROUGH PAIN
     Route: 048

REACTIONS (7)
  - ABNORMAL LOSS OF WEIGHT [None]
  - BLISTER [None]
  - BONE PAIN [None]
  - PANIC ATTACK [None]
  - PRODUCT QUALITY ISSUE [None]
  - PRURITUS [None]
  - WITHDRAWAL SYNDROME [None]
